FAERS Safety Report 5394100-X (Version None)
Quarter: 2007Q3

REPORT INFORMATION
  Report Type: 
  Country: None (occurrence: None)
  Receive Date: 20070723
  Receipt Date: 20070313
  Transmission Date: 20080115
  Serious: Yes (Other)
  Sender: FDA-Public Use
  Company Number: A0643044A

PATIENT
  Age: 57 Year
  Sex: Male

DRUGS (15)
  1. AVANDIA [Suspect]
     Dosage: 8MG PER DAY
     Route: 048
  2. LOPRESSOR [Concomitant]
  3. ACE INHIBITOR [Concomitant]
  4. VITAMIN B6 [Concomitant]
  5. VITAMIN B COMPLEX CAP [Concomitant]
  6. MULTI-VITAMIN [Concomitant]
  7. ASPIRIN [Concomitant]
  8. VASOTEC [Concomitant]
  9. PRILOSEC [Concomitant]
  10. RANITIDINE [Concomitant]
  11. ZETIA [Concomitant]
  12. METOCLOPRAMIDE [Concomitant]
  13. IRON [Concomitant]
  14. PANCREASE [Concomitant]
  15. ZOCOR [Concomitant]

REACTIONS (2)
  - ANAEMIA [None]
  - HAEMATOCRIT DECREASED [None]
